FAERS Safety Report 4393581-8 (Version None)
Quarter: 2004Q3

REPORT INFORMATION
  Report Type: 
  Country: None (occurrence: None)
  Receive Date: 20040706
  Receipt Date: 20040706
  Transmission Date: 20050211
  Serious: Yes (Hospitalization)
  Sender: FDA-Public Use
  Company Number: None

PATIENT
  Age: 74 Year
  Sex: Male
  Weight: 72.09 kg

DRUGS (1)
  1. POTASSIUM CHLORIDE [Suspect]
     Dosage: 20 MEQ PO QD
     Route: 048
     Dates: start: 20040124

REACTIONS (5)
  - ELECTROCARDIOGRAM CHANGE [None]
  - ELECTROCARDIOGRAM QRS COMPLEX PROLONGED [None]
  - HYPERKALAEMIA [None]
  - HYPERPHOSPHATAEMIA [None]
  - RENAL FAILURE ACUTE [None]
